FAERS Safety Report 9668719 (Version 1)
Quarter: 2013Q4

REPORT INFORMATION
  Report Type: Spontaneous
  Country: US (occurrence: None)
  Receive Date: 20131104
  Receipt Date: 20131104
  Transmission Date: 20140711
  Serious: Yes (Death, Life-Threatening, Hospitalization)
  Sender: FDA-Public Use
  Company Number: None

PATIENT
  Age: 76 Year
  Sex: Male
  Weight: 60 kg

DRUGS (5)
  1. FLUOROURACIL [Suspect]
     Indication: NASOPHARYNGEAL CANCER
     Dates: start: 20131004, end: 20131007
  2. INSULIN/HUMALOG [Concomitant]
  3. METOPROLOL [Concomitant]
  4. DIOVAN [Concomitant]
  5. GLUCERNA [Concomitant]

REACTIONS (18)
  - Oropharyngeal pain [None]
  - Odynophagia [None]
  - Nausea [None]
  - Vomiting [None]
  - Ileus [None]
  - Sepsis [None]
  - Pancytopenia [None]
  - Pyrexia [None]
  - Septic shock [None]
  - Metabolic acidosis [None]
  - Neutropenia [None]
  - Atrial fibrillation [None]
  - Bradycardia [None]
  - Unresponsive to stimuli [None]
  - Depressed level of consciousness [None]
  - Toxicity to various agents [None]
  - Mucosal inflammation [None]
  - Bacterial translocation [None]
